FAERS Safety Report 17515950 (Version 1)
Quarter: 2020Q1

REPORT INFORMATION
  Report Type: Spontaneous
  Country: US (occurrence: US)
  Receive Date: 20200309
  Receipt Date: 20200309
  Transmission Date: 20200409
  Serious: No
  Sender: FDA-Public Use
  Company Number: US-MYLANLABS-2020M1023563

PATIENT
  Age: 34 Year
  Sex: Male
  Weight: 48 kg

DRUGS (3)
  1. SCOPOLAMINE                        /00008701/ [Concomitant]
     Active Substance: SCOPOLAMINE
     Dosage: UNK
  2. YUPELRI [Suspect]
     Active Substance: REVEFENACIN
     Indication: COUGH
  3. YUPELRI [Suspect]
     Active Substance: REVEFENACIN
     Indication: SPINAL STENOSIS
     Dosage: ONCE DAILY
     Route: 048
     Dates: start: 20200226, end: 20200227

REACTIONS (2)
  - Off label use [Unknown]
  - Increased bronchial secretion [Not Recovered/Not Resolved]

NARRATIVE: CASE EVENT DATE: 20200226
